FAERS Safety Report 23140198 (Version 2)
Quarter: 2023Q4

REPORT INFORMATION
  Report Type: Spontaneous
  Country: BR (occurrence: None)
  Receive Date: 20231102
  Receipt Date: 20231211
  Transmission Date: 20240110
  Serious: Yes (Hospitalization)
  Sender: FDA-Public Use
  Company Number: BR-ROCHE-3446260

PATIENT
  Sex: Female
  Weight: 59 kg

DRUGS (2)
  1. ERIVEDGE [Suspect]
     Active Substance: VISMODEGIB
     Indication: Basal cell naevus syndrome
     Route: 048
     Dates: start: 2022
  2. ERIVEDGE [Suspect]
     Active Substance: VISMODEGIB
     Indication: Neoplasm malignant

REACTIONS (11)
  - Pancreatitis acute [Unknown]
  - Ageusia [Unknown]
  - Anosmia [Unknown]
  - Alopecia [Unknown]
  - Fatigue [Unknown]
  - Muscle spasms [Unknown]
  - Muscle spasms [Unknown]
  - Hypoaesthesia [Unknown]
  - Abdominal pain [Unknown]
  - Malaise [Unknown]
  - Back pain [Unknown]

NARRATIVE: CASE EVENT DATE: 20231001
